FAERS Safety Report 6517843-0 (Version None)
Quarter: 2009Q4

REPORT INFORMATION
  Report Type: 
  Country: None (occurrence: None)
  Receive Date: 20091224
  Receipt Date: 20091217
  Transmission Date: 20100525
  Serious: Yes (Hospitalization, Other)
  Sender: FDA-Public Use
  Company Number: PHHO2009US14951

PATIENT
  Sex: Male

DRUGS (6)
  1. AFINITOR [Suspect]
     Indication: HEAD AND NECK CANCER
     Dosage: 5 MG ALT W/10 MG EVERY OTHER DAY
     Dates: start: 20091103
  2. AFINITOR [Suspect]
     Dosage: 5 MG ALT W/10 MG EVERY OTHER DAY
     Dates: end: 20091207
  3. AMOXIL [Suspect]
  4. DOCETAXEL [Concomitant]
  5. CISPLATIN [Concomitant]
  6. FLUID/ELECTROLYTE REPLACEMENT THERAPY [Concomitant]

REACTIONS (7)
  - ABDOMINAL PAIN [None]
  - ABDOMINAL TENDERNESS [None]
  - DIARRHOEA [None]
  - DIVERTICULITIS [None]
  - INFECTION [None]
  - SMALL INTESTINAL PERFORATION [None]
  - SYNCOPE [None]
